FAERS Safety Report 15125119 (Version 1)
Quarter: 2018Q3

REPORT INFORMATION
  Report Type: Spontaneous
  Country: US (occurrence: US)
  Receive Date: 20180614
  Receipt Date: 20180614
  Transmission Date: 20181010
  Serious: Yes (Disabling)
  Sender: FDA-Public Use
  Company Number: None

PATIENT
  Age: 70 Year
  Sex: Female
  Weight: 67.5 kg

DRUGS (7)
  1. IMIQUIMOD. [Suspect]
     Active Substance: IMIQUIMOD
     Indication: ACTINIC KERATOSIS
     Dosage: ?          QUANTITY:1 APPLICATION;?
     Route: 061
     Dates: start: 20180527, end: 20180613
  2. VIT. B [Concomitant]
  3. AREDS2 [Concomitant]
  4. VIT. D [Concomitant]
  5. TRI?BORON [Concomitant]
  6. TYLENOL [Concomitant]
     Active Substance: ACETAMINOPHEN
  7. MAGNESIUM [Concomitant]
     Active Substance: MAGNESIUM

REACTIONS (6)
  - Skin warm [None]
  - Lip exfoliation [None]
  - Lip erythema [None]
  - Skin lesion [None]
  - Lip swelling [None]
  - Lip pain [None]

NARRATIVE: CASE EVENT DATE: 20180601
